FAERS Safety Report 7286778-0 (Version None)
Quarter: 2011Q1

REPORT INFORMATION
  Report Type: 
  Country: None (occurrence: None)
  Receive Date: 20110210
  Receipt Date: 20110201
  Transmission Date: 20110831
  Serious: Yes (Other)
  Sender: FDA-Public Use
  Company Number: US-MERCK-1010USA03360

PATIENT
  Age: 21 Year
  Sex: Male
  Weight: 69 kg

DRUGS (2)
  1. DULERA TABLET [Concomitant]
     Route: 065
  2. SINGULAIR [Suspect]
     Indication: ASTHMA
     Route: 048
     Dates: start: 20100924, end: 20101015

REACTIONS (14)
  - SEASONAL ALLERGY [None]
  - HALLUCINATION [None]
  - MOOD ALTERED [None]
  - NASAL CONGESTION [None]
  - CHEST DISCOMFORT [None]
  - CONJUNCTIVITIS ALLERGIC [None]
  - ATOPY [None]
  - HYPERTENSION [None]
  - SUICIDAL IDEATION [None]
  - ANGER [None]
  - RESPIRATORY TRACT CONGESTION [None]
  - SINUS HEADACHE [None]
  - COUGH [None]
  - TINNITUS [None]
